FAERS Safety Report 9628372 (Version 6)
Quarter: 2015Q3

REPORT INFORMATION
  Report Type: Spontaneous
  Country: US (occurrence: US)
  Receive Date: 20131017
  Receipt Date: 20150701
  Transmission Date: 20151125
  Serious: Yes (Hospitalization, Other)
  Sender: FDA-Public Use
  Company Number: US-009507513-1310USA005509

PATIENT
  Sex: Female
  Weight: 59.41 kg

DRUGS (7)
  1. CALCIUM (UNSPECIFIED) (+) VITAMIN D (UNSPECIFIED) [Concomitant]
     Active Substance: CALCIUM CARBONATE\VITAMIN D
     Dosage: 1 DF, QD
     Dates: start: 1994
  2. FOSAMAX [Suspect]
     Active Substance: ALENDRONATE SODIUM
     Indication: OSTEOPOROSIS PROPHYLAXIS
     Dosage: 70 MG, UNK
     Route: 048
     Dates: start: 2001, end: 200503
  3. VITAMIN D [Concomitant]
     Active Substance: CHOLECALCIFEROL
     Dosage: 1 DF, QD
     Route: 048
     Dates: start: 1994
  4. SIMVASTATIN. [Concomitant]
     Active Substance: SIMVASTATIN
     Indication: HYPERLIPIDAEMIA
     Dosage: 10 MG, UNK
     Dates: start: 2000
  5. CYANOCOBALAMIN. [Concomitant]
     Active Substance: CYANOCOBALAMIN
     Dosage: 1000 MICRO-G/ML, UNK
     Dates: start: 1994
  6. LOTREL [Concomitant]
     Active Substance: AMLODIPINE BESYLATE\BENAZEPRIL HYDROCHLORIDE
     Indication: ESSENTIAL HYPERTENSION
     Dosage: 50-10 MG
     Dates: start: 1995
  7. ALENDRONATE SODIUM. [Suspect]
     Active Substance: ALENDRONATE SODIUM
     Indication: OSTEOPOROSIS POSTMENOPAUSAL

REACTIONS (24)
  - Femur fracture [Recovered/Resolved]
  - Femur fracture [Recovered/Resolved]
  - Adverse event [Unknown]
  - Intramedullary rod insertion [Recovered/Resolved]
  - Intramedullary rod insertion [Recovered/Resolved]
  - Radiotherapy to breast [Unknown]
  - Arthritis [Unknown]
  - Haemorrhagic anaemia [Unknown]
  - Sinus arrhythmia [Unknown]
  - Blindness [Unknown]
  - Hysterectomy [Unknown]
  - Appendicectomy [Unknown]
  - Oophorectomy [Unknown]
  - Vitamin B12 deficiency [Unknown]
  - Low turnover osteopathy [Unknown]
  - Corneal transplant [Unknown]
  - Osteopenia [Unknown]
  - Cholecystectomy [Unknown]
  - Spinal column stenosis [Unknown]
  - Scoliosis [Unknown]
  - Rib fracture [Unknown]
  - Breast cancer [Unknown]
  - Tonsillectomy [Unknown]
  - Neuropathy peripheral [Unknown]

NARRATIVE: CASE EVENT DATE: 201103
